FAERS Safety Report 6748476-9 (Version None)
Quarter: 2010Q2

REPORT INFORMATION
  Report Type: 
  Country: None (occurrence: None)
  Receive Date: 20100527
  Receipt Date: 20100527
  Transmission Date: 20101027
  Serious: Yes (Disabling)
  Sender: FDA-Public Use
  Company Number: None

PATIENT
  Age: 17 Year
  Sex: Female
  Weight: 81.6475 kg

DRUGS (2)
  1. PROZAC [Suspect]
  2. GENERIC PROZAC 20MG CANNOT TAKE CAUSE SEIZURE FROM DYE INTHE MEDICINE. [Suspect]

REACTIONS (9)
  - ARTHRALGIA [None]
  - BLOOD IRON DECREASED [None]
  - CONVULSION [None]
  - DEPRESSION [None]
  - GASTROOESOPHAGEAL REFLUX DISEASE [None]
  - MULTIPLE ALLERGIES [None]
  - MUSCLE SPASMS [None]
  - PAIN [None]
  - PRODUCT MEASURED POTENCY ISSUE [None]
